FAERS Safety Report 6860330-0 (Version None)
Quarter: 2010Q3

REPORT INFORMATION
  Report Type: 
  Country: None (occurrence: None)
  Receive Date: 20100720
  Receipt Date: 20100709
  Transmission Date: 20110219
  Serious: Yes (Other)
  Sender: FDA-Public Use
  Company Number: RU-SANOFI-AVENTIS-2010SA039814

PATIENT
  Age: 78 Year
  Sex: Male
  Weight: 76 kg

DRUGS (6)
  1. TRENTAL [Suspect]
     Indication: ENCEPHALOPATHY
     Route: 042
     Dates: start: 20100602, end: 20100607
  2. PIRACETAM [Concomitant]
     Indication: ENCEPHALOPATHY
     Route: 042
     Dates: start: 20100531, end: 20100607
  3. DIGOXIN [Concomitant]
     Route: 048
     Dates: start: 20100531
  4. HYDROCHLOROTHIAZIDE [Concomitant]
     Route: 048
     Dates: start: 20100531
  5. BERLIPRIL [Concomitant]
     Route: 048
     Dates: start: 20100531
  6. NAKOM [Concomitant]
     Indication: PARKINSON'S DISEASE
     Route: 048
     Dates: start: 20100531

REACTIONS (1)
  - ATRIAL FIBRILLATION [None]
